FAERS Safety Report 7598504-6 (Version None)
Quarter: 2011Q3

REPORT INFORMATION
  Report Type: 
  Country: None (occurrence: None)
  Receive Date: 20110708
  Receipt Date: 20110629
  Transmission Date: 20111222
  Serious: Yes (Hospitalization, Other)
  Sender: FDA-Public Use
  Company Number: US-RB-025678-11

PATIENT
  Age: 57 Year
  Sex: Female

DRUGS (2)
  1. SUBOXONE [Suspect]
     Indication: PRODUCT USED FOR UNKNOWN INDICATION
     Dosage: SUBLINGUAL FILM- DOSING INFORMATION UNKNOWN
     Route: 065
  2. SUBOXONE [Suspect]
     Indication: PRODUCT USED FOR UNKNOWN INDICATION
     Dosage: DOSING INFORMATION UNKNOWN.
     Route: 065

REACTIONS (8)
  - ERYTHEMA [None]
  - TREMOR [None]
  - EYE SWELLING [None]
  - RENAL IMPAIRMENT [None]
  - DEPRESSION [None]
  - THERAPEUTIC RESPONSE UNEXPECTED [None]
  - DYSPNOEA [None]
  - DRY SKIN [None]
